FAERS Safety Report 20354648 (Version 6)
Quarter: 2022Q1

REPORT INFORMATION
  Report Type: Report from Study
  Country: CN (occurrence: CN)
  Receive Date: 20220120
  Receipt Date: 20220314
  Transmission Date: 20220424
  Serious: Yes (Hospitalization, Other)
  Sender: FDA-Public Use
  Company Number: CN-NOVARTISPH-NVSC2022CN006177

PATIENT
  Age: 52 Year
  Sex: Male
  Weight: 67.9 kg

DRUGS (5)
  1. MEKINIST [Suspect]
     Active Substance: TRAMETINIB DIMETHYL SULFOXIDE
     Indication: Malignant melanoma
     Dosage: 2 MG, QD
     Route: 048
     Dates: start: 20211111
  2. MEKINIST [Suspect]
     Active Substance: TRAMETINIB DIMETHYL SULFOXIDE
     Dosage: 2 MG, QD
     Route: 048
     Dates: start: 20211118
  3. TAFINLAR [Suspect]
     Active Substance: DABRAFENIB MESYLATE
     Indication: Malignant melanoma
     Dosage: 150 MG, BID
     Route: 048
     Dates: start: 20211111
  4. TAFINLAR [Suspect]
     Active Substance: DABRAFENIB MESYLATE
     Dosage: 150 MG, BID
     Route: 048
     Dates: start: 20211118
  5. VITAMINS [Concomitant]
     Active Substance: VITAMINS
     Indication: Vitamin supplementation
     Dosage: COMPOUND, BID (QD)
     Route: 048
     Dates: start: 20220107

REACTIONS (18)
  - Type 2 diabetes mellitus [Not Recovered/Not Resolved]
  - Dry mouth [Unknown]
  - Polydipsia [Unknown]
  - Weight decreased [Unknown]
  - Urine output increased [Unknown]
  - Polyuria [Unknown]
  - Malignant melanoma [Unknown]
  - Carotid artery stenosis [Not Recovered/Not Resolved]
  - Hyperthyroidism [Not Recovered/Not Resolved]
  - Hyperglycaemia [Not Recovered/Not Resolved]
  - Emphysema [Unknown]
  - Lung opacity [Not Recovered/Not Resolved]
  - Hepatic cyst [Not Recovered/Not Resolved]
  - Thyroid mass [Not Recovered/Not Resolved]
  - Renal cyst [Not Recovered/Not Resolved]
  - Adrenogenital syndrome [Unknown]
  - Lower limb fracture [Unknown]
  - Adrenomegaly [Not Recovered/Not Resolved]

NARRATIVE: CASE EVENT DATE: 20220101
